FAERS Safety Report 8493983-4 (Version None)
Quarter: 2012Q3

REPORT INFORMATION
  Report Type: 
  Country: None (occurrence: None)
  Receive Date: 20120709
  Receipt Date: 20120629
  Transmission Date: 20120928
  Serious: Yes (Hospitalization)
  Sender: FDA-Public Use
  Company Number: US-BIOGENIDEC-2012BI020569

PATIENT
  Age: 52 Year
  Sex: Female

DRUGS (8)
  1. BACLOFEN [Concomitant]
  2. MECLIZINE [Concomitant]
  3. TYSABRI [Suspect]
     Indication: MULTIPLE SCLEROSIS
     Route: 042
     Dates: start: 20111230, end: 20120227
  4. ZOLOFT [Concomitant]
  5. PREDNISONE [Concomitant]
  6. BUMEX [Concomitant]
  7. NAPROXEN [Concomitant]
  8. PEPCID [Concomitant]

REACTIONS (5)
  - NECROTISING COLITIS [None]
  - POSTOPERATIVE ABSCESS [None]
  - ABDOMINAL SEPSIS [None]
  - ENTEROCOCCAL INFECTION [None]
  - ABSCESS FUNGAL [None]
